FAERS Safety Report 16544945 (Version 2)
Quarter: 2019Q3

REPORT INFORMATION
  Report Type: Spontaneous
  Country: US (occurrence: US)
  Receive Date: 20190709
  Receipt Date: 20190711
  Transmission Date: 20191004
  Serious: Yes (Death, Other)
  Sender: FDA-Public Use
  Company Number: US-PFIZER INC-2019289491

PATIENT
  Age: 19 Year
  Sex: Male

DRUGS (4)
  1. BENZATHINE BENZYLPENICILLIN [Suspect]
     Active Substance: PENICILLIN G BENZATHINE
     Indication: PROPHYLAXIS
     Dosage: 1200000 IU, SINGLE (INJECTION, 1200000 UNITS, ON THE NINTH DAY, AT 11:15 A.M.)
  2. PROCAINE PENICILLIN G [Concomitant]
     Active Substance: PENICILLIN G PROCAINE
     Indication: STREPTOCOCCAL INFECTION
     Dosage: 600000 IU, 2X/DAY
  3. BENZATHINE BENZYLPENICILLIN [Suspect]
     Active Substance: PENICILLIN G BENZATHINE
     Indication: CARDIOVASCULAR EVENT PROPHYLAXIS
     Dosage: 600000 IU, 2X/DAY (INJECTION, 600000 UNITS FROM THE FIFTH TO THE EIGHTH HOSPITAL DAY)
  4. BENZATHINE BENZYLPENICILLIN [Suspect]
     Active Substance: PENICILLIN G BENZATHINE
     Indication: ANTIBIOTIC PROPHYLAXIS

REACTIONS (2)
  - Anaphylactic shock [Fatal]
  - Carditis [Fatal]
